FAERS Safety Report 19271372 (Version 2)
Quarter: 2021Q3

REPORT INFORMATION
  Report Type: Spontaneous
  Country: US (occurrence: US)
  Receive Date: 20210518
  Receipt Date: 20210924
  Transmission Date: 20211014
  Serious: Yes (Congenital Anomaly, Other)
  Sender: FDA-Public Use
  Company Number: US-PURDUE-USA-2020-0223389

PATIENT
  Sex: Male

DRUGS (2)
  1. OPANA [Suspect]
     Active Substance: OXYMORPHONE HYDROCHLORIDE
     Indication: PAIN
     Dosage: 180 PILLS PER MONTH
     Route: 065
  2. OXYCONTIN [Suspect]
     Active Substance: OXYCODONE HYDROCHLORIDE
     Indication: PAIN
     Dosage: UNKNOWN
     Route: 048

REACTIONS (7)
  - Drug dependence [Unknown]
  - Developmental delay [Unknown]
  - Drug withdrawal syndrome [Unknown]
  - Learning disability [Unknown]
  - Congenital anomaly [Unknown]
  - Disturbance in attention [Unknown]
  - Product prescribing error [Unknown]
